FAERS Safety Report 9190351 (Version 2)
Quarter: 2013Q1

REPORT INFORMATION
  Report Type: Spontaneous
  Country: US (occurrence: US)
  Receive Date: 20130326
  Receipt Date: 20130326
  Transmission Date: 20140127
  Serious: Yes (Other)
  Sender: FDA-Public Use
  Company Number: US-PFIZER INC-2013047484

PATIENT
  Age: 64 Year
  Sex: Female
  Weight: 90.7 kg

DRUGS (3)
  1. ANBESOL MAXIMUM STRENGTH GEL [Suspect]
     Indication: TOOTHACHE
     Dosage: UNK, 3X/DAY
     Dates: start: 20130203, end: 20130203
  2. LISINOPRIL [Concomitant]
     Dosage: UNK
  3. LOVASTATIN [Concomitant]
     Dosage: UNK

REACTIONS (5)
  - Abscess jaw [Unknown]
  - Expired drug administered [Unknown]
  - Drug ineffective [Unknown]
  - Hypoaesthesia oral [Unknown]
  - Hypoaesthesia [Unknown]
